FAERS Safety Report 8358211-9 (Version None)
Quarter: 2012Q2

REPORT INFORMATION
  Report Type: 
  Country: None (occurrence: None)
  Receive Date: 20120514
  Receipt Date: 20120507
  Transmission Date: 20120825
  Serious: Yes (Hospitalization)
  Sender: FDA-Public Use
  Company Number: US-GLAXOSMITHKLINE-A0977364A

PATIENT
  Sex: Male

DRUGS (2)
  1. AVANDAMET [Suspect]
     Indication: PRODUCT USED FOR UNKNOWN INDICATION
     Route: 065
     Dates: start: 20100106
  2. METFORMIN HCL [Concomitant]

REACTIONS (3)
  - TREATMENT NONCOMPLIANCE [None]
  - ASTHMA [None]
  - BLOOD GLUCOSE INCREASED [None]
